FAERS Safety Report 4592626-X (Version None)
Quarter: 2005Q1

REPORT INFORMATION
  Report Type: 
  Country: None (occurrence: None)
  Receive Date: 20050228
  Receipt Date: 20050215
  Transmission Date: 20050727
  Serious: Yes (Hospitalization)
  Sender: FDA-Public Use
  Company Number: AU-JNJFOC-20050204437

PATIENT
  Age: 87 Year
  Sex: Female

DRUGS (7)
  1. TRAMADOL HCL [Suspect]
     Indication: SENSORY DISTURBANCE
     Route: 049
  2. LACTULOSE [Concomitant]
     Route: 049
  3. ACETAZOLAMIDE [Concomitant]
     Route: 049
  4. AMITRIPTYLINE HYDROCHLORIDE [Concomitant]
     Route: 065
  5. BIMATOPROST [Concomitant]
     Route: 057
  6. DORZOLAMIDE HYDROCHLORIDE/TIMOLOL MALEATE [Concomitant]
     Route: 057
  7. BRIMONIDINE TARTRATE [Concomitant]
     Route: 057

REACTIONS (2)
  - CONFUSIONAL STATE [None]
  - FALL [None]
